FAERS Safety Report 4764997-2 (Version None)
Quarter: 2005Q3

REPORT INFORMATION
  Report Type: 
  Country: None (occurrence: None)
  Receive Date: 20050907
  Receipt Date: 20050825
  Transmission Date: 20060218
  Serious: Yes (Other)
  Sender: FDA-Public Use
  Company Number: 2005107255

PATIENT
  Age: 53 Year
  Sex: Male
  Weight: 105.2345 kg

DRUGS (8)
  1. DEPO-TESTOSTERONE [Suspect]
     Indication: HYPOGONADISM
     Dosage: SEE IMAGE
     Route: 030
     Dates: start: 20050715, end: 20050715
  2. DEPO-TESTOSTERONE [Suspect]
     Indication: HYPOTHALAMO-PITUITARY DISORDERS
     Dosage: SEE IMAGE
     Route: 030
     Dates: start: 20050715, end: 20050715
  3. DEPO-TESTOSTERONE [Suspect]
     Indication: HYPOGONADISM
     Dosage: SEE IMAGE
     Route: 030
     Dates: start: 20050302
  4. DEPO-TESTOSTERONE [Suspect]
     Indication: HYPOTHALAMO-PITUITARY DISORDERS
     Dosage: SEE IMAGE
     Route: 030
     Dates: start: 20050302
  5. DEPO-TESTOSTERONE [Suspect]
  6. COATED ASPIRIN (ACETYLSALICYLIC ACID) [Concomitant]
  7. ALTACE [Concomitant]
  8. NIASPAN [Concomitant]

REACTIONS (5)
  - CONTUSION [None]
  - ECCHYMOSIS [None]
  - INJECTION SITE PAIN [None]
  - ISCHAEMIC CEREBRAL INFARCTION [None]
  - MYOCARDIAL INFARCTION [None]
